FAERS Safety Report 5298477-5 (Version None)
Quarter: 2007Q2

REPORT INFORMATION
  Report Type: 
  Country: None (occurrence: None)
  Receive Date: 20070409
  Receipt Date: 20070327
  Transmission Date: 20071010
  Serious: Yes (Hospitalization)
  Sender: FDA-Public Use
  Company Number: MEDI-0005526

PATIENT
  Age: 43 Year
  Sex: Male

DRUGS (9)
  1. ETHYOL [Suspect]
     Indication: TONGUE NEOPLASM MALIGNANT STAGE UNSPECIFIED
     Dosage: SEE IMAGE
     Route: 042
     Dates: start: 20070305, end: 20070315
  2. ETHYOL [Suspect]
     Indication: TONGUE NEOPLASM MALIGNANT STAGE UNSPECIFIED
     Dosage: SEE IMAGE
     Route: 042
     Dates: start: 20070316, end: 20070320
  3. ETHYOL [Suspect]
     Indication: TONGUE NEOPLASM MALIGNANT STAGE UNSPECIFIED
     Dosage: SEE IMAGE
     Route: 042
     Dates: start: 20070326, end: 20070326
  4. ETHYOL [Suspect]
     Indication: TONGUE NEOPLASM MALIGNANT STAGE UNSPECIFIED
     Dosage: SEE IMAGE
     Route: 042
     Dates: start: 20070330
  5. RADIATION [Concomitant]
  6. CISPLATIN [Concomitant]
  7. 5-FLUROURACIL (FLUOROURACIL) [Concomitant]
  8. ANZEMET [Concomitant]
  9. IMITREX [Concomitant]

REACTIONS (5)
  - FEBRILE NEUTROPENIA [None]
  - OXYGEN SATURATION DECREASED [None]
  - SEPTIC SHOCK [None]
  - TACHYCARDIA [None]
  - VOMITING [None]
